FAERS Safety Report 24102495 (Version 1)
Quarter: 2024Q3

REPORT INFORMATION
  Report Type: Report from Study
  Country: DE (occurrence: DE)
  Receive Date: 20240717
  Receipt Date: 20240717
  Transmission Date: 20241016
  Serious: Yes (Other)
  Sender: AMGEN
  Company Number: DE-ROCHE-10000015282

PATIENT
  Age: 31 Year
  Sex: Female
  Weight: 51 kg

DRUGS (3)
  1. TRASTUZUMAB [Suspect]
     Active Substance: TRASTUZUMAB
     Indication: Breast cancer
     Dosage: 180 MILLIGRAM/KILOGRAM (DATE OF LAST APPLICATION PRIOR TO EVENT 27/FEB/2024 EVERY 3 MONTHS)
     Route: 065
     Dates: start: 20231115, end: 20240319
  2. ANASTROZOLE [Suspect]
     Active Substance: ANASTROZOLE
     Indication: Breast cancer
     Dosage: 1 MILLIGRAM/KILOGRAM
     Route: 065
     Dates: start: 20231108
  3. ANASTROZOLE [Suspect]
     Active Substance: ANASTROZOLE
     Dosage: 100 MILLIGRAM/KILOGRAM, QD
     Route: 065
     Dates: start: 20240317

REACTIONS (1)
  - Polyneuropathy [Recovered/Resolved]

NARRATIVE: CASE EVENT DATE: 20240318
